FAERS Safety Report 14462198 (Version 3)
Quarter: 2018Q2

REPORT INFORMATION
  Report Type: Spontaneous
  Country: DE (occurrence: DE)
  Receive Date: 20180130
  Receipt Date: 20180627
  Transmission Date: 20180711
  Serious: Yes (Hospitalization, Other)
  Sender: FDA-Public Use
  Company Number: DE-MYLANLABS-2018M1005329

PATIENT
  Age: 78 Year
  Sex: Female

DRUGS (39)
  1. MIRTAZAPINE. [Suspect]
     Active Substance: MIRTAZAPINE
     Indication: PRODUCT USED FOR UNKNOWN INDICATION
     Dosage: 30 MG, UNK
     Route: 048
  2. PIPAMPERON [Interacting]
     Active Substance: PIPAMPERONE HYDROCHLORIDE
     Dosage: 40 MG, UNK
     Route: 048
     Dates: start: 20140510, end: 20140513
  3. PIPAMPERON [Interacting]
     Active Substance: PIPAMPERONE HYDROCHLORIDE
     Dosage: 120 MG, UNK
     Route: 048
     Dates: start: 20140527, end: 20140527
  4. ABILIFY [Interacting]
     Active Substance: ARIPIPRAZOLE
     Dosage: 5 MG, UNK
     Route: 048
     Dates: start: 20140515, end: 20140520
  5. STILNOX [Interacting]
     Active Substance: ZOLPIDEM TARTRATE
     Indication: PRODUCT USED FOR UNKNOWN INDICATION
     Dosage: 10 MG, QD
     Route: 048
     Dates: start: 20140527
  6. METAMIZOL                          /06276702/ [Interacting]
     Active Substance: METAMIZOLE
     Indication: PRODUCT USED FOR UNKNOWN INDICATION
     Dosage: 500 MG, QD
     Route: 048
     Dates: start: 20140530
  7. INSULIN [Concomitant]
     Active Substance: INSULIN NOS
     Indication: PRODUCT USED FOR UNKNOWN INDICATION
     Dosage: 60 IU, UNK
     Route: 058
  8. MACROGOL [Concomitant]
     Active Substance: POLYETHYLENE GLYCOLS
     Indication: PRODUCT USED FOR UNKNOWN INDICATION
     Dosage: 1 DF, QD
     Route: 048
     Dates: start: 20110101
  9. PIPAMPERON [Interacting]
     Active Substance: PIPAMPERONE HYDROCHLORIDE
     Dosage: 80 MG, QD
     Route: 048
     Dates: start: 20140525, end: 20140526
  10. METAMIZOL [Interacting]
     Active Substance: METAMIZOLE SODIUM
     Dosage: DAILY DOSE: 2000 MG MILLIGRAM(S) EVERY DAY
     Route: 048
     Dates: start: 20140518, end: 20140519
  11. METAMIZOL [Interacting]
     Active Substance: METAMIZOLE SODIUM
     Dosage: 1000 MG, QD
     Route: 048
     Dates: start: 20140520, end: 20140521
  12. METAMIZOL [Interacting]
     Active Substance: METAMIZOLE SODIUM
     Dosage: 500 MG, QD
     Route: 048
     Dates: start: 20140522, end: 20140522
  13. METAMIZOL [Interacting]
     Active Substance: METAMIZOLE SODIUM
     Dosage: 1000 MG, QD 500-1000 MG QD
     Route: 048
     Dates: start: 20140502, end: 20140517
  14. PIPAMPERON [Interacting]
     Active Substance: PIPAMPERONE HYDROCHLORIDE
     Indication: PRODUCT USED FOR UNKNOWN INDICATION
     Dosage: 20 MG, QD
     Route: 048
     Dates: start: 20140508, end: 20140509
  15. METAMIZOL [Interacting]
     Active Substance: METAMIZOLE SODIUM
     Dosage: 1000 MG, QD
     Route: 048
     Dates: start: 20140523, end: 20140525
  16. METAMIZOL [Interacting]
     Active Substance: METAMIZOLE SODIUM
     Dosage: 500 MG, QD
     Route: 048
     Dates: start: 20140526, end: 20140528
  17. FORMOTEROL [Concomitant]
     Active Substance: FORMOTEROL
     Indication: PRODUCT USED FOR UNKNOWN INDICATION
     Dosage: DAILY DOSE: 1 DF DOSAGE FORM EVERY DAY
     Route: 065
     Dates: start: 20131201
  18. AMLODIPIN                          /00972401/ [Concomitant]
     Active Substance: AMLODIPINE BESYLATE
     Indication: PRODUCT USED FOR UNKNOWN INDICATION
     Dosage: DAILY DOSE: 10 MG MILLIGRAM(S) EVERY DAY
     Route: 048
     Dates: start: 20110101
  19. METAMIZOL [Interacting]
     Active Substance: METAMIZOLE SODIUM
     Indication: PRODUCT USED FOR UNKNOWN INDICATION
     Dosage: 1 DF, UNK
     Route: 048
     Dates: start: 20140502, end: 20140516
  20. METAMIZOL [Interacting]
     Active Substance: METAMIZOLE SODIUM
     Dosage: 500 MG, QD
     Route: 048
     Dates: start: 20140530
  21. METAMIZOL [Interacting]
     Active Substance: METAMIZOLE SODIUM
     Dosage: 1500 MG, UNK
     Route: 048
  22. LISINOPRIL. [Interacting]
     Active Substance: LISINOPRIL
     Indication: PRODUCT USED FOR UNKNOWN INDICATION
     Dosage: 5 MG, UNK
     Route: 048
  23. VENLAFAXIN [Concomitant]
     Active Substance: VENLAFAXINE HYDROCHLORIDE
     Indication: PRODUCT USED FOR UNKNOWN INDICATION
     Dosage: 30 MG, UNK
     Route: 048
  24. METAMIZOL [Interacting]
     Active Substance: METAMIZOLE SODIUM
     Dosage: DOSAGE FORM: UNSPECIFIED, 500-1000 MG
     Route: 048
     Dates: start: 20140517, end: 20140517
  25. CLOPIDOGREL [Concomitant]
     Active Substance: CLOPIDOGREL BISULFATE
     Indication: PRODUCT USED FOR UNKNOWN INDICATION
     Dosage: 75 MG, QD
     Route: 048
     Dates: start: 20110101
  26. PIPAMPERON [Interacting]
     Active Substance: PIPAMPERONE HYDROCHLORIDE
     Dosage: 20 MG, QD
     Route: 048
     Dates: start: 20140528, end: 20140528
  27. DIAZEPAM. [Interacting]
     Active Substance: DIAZEPAM
     Dosage: 30 MG, QD
     Route: 030
     Dates: start: 20140526, end: 20140528
  28. DUROGESIC [Interacting]
     Active Substance: FENTANYL
     Indication: PRODUCT USED FOR UNKNOWN INDICATION
     Dosage: 75 ?G, Q72H
     Route: 062
     Dates: start: 20120101
  29. OPHTALMIN N [Concomitant]
     Indication: PRODUCT USED FOR UNKNOWN INDICATION
     Dosage: UNK 2X1 SINCE WEEKS
     Route: 065
  30. RESONIUM [Concomitant]
     Active Substance: SODIUM POLYSTYRENE SULFONATE
     Indication: PRODUCT USED FOR UNKNOWN INDICATION
     Dosage: 2 TABLE SPOON
     Route: 048
  31. PREDNISOLON                        /00016201/ [Concomitant]
     Active Substance: PREDNISOLONE
     Indication: PRODUCT USED FOR UNKNOWN INDICATION
     Dosage: 60 MG, UNK
     Route: 048
  32. PANTOPRAZOL [Concomitant]
     Active Substance: PANTOPRAZOLE SODIUM
     Indication: PRODUCT USED FOR UNKNOWN INDICATION
     Dosage: DAILY DOSE: 40 MG MILLIGRAM(S) EVERY DAY
     Route: 048
  33. PIPAMPERON [Interacting]
     Active Substance: PIPAMPERONE HYDROCHLORIDE
     Dosage: UNK
  34. LISINOPRIL. [Interacting]
     Active Substance: LISINOPRIL
     Dosage: 2.5 UNK, UNK
     Route: 048
  35. FOLSAEURE [Concomitant]
     Active Substance: FOLIC ACID
     Indication: PRODUCT USED FOR UNKNOWN INDICATION
     Dosage: 5 MG, QD
     Route: 048
     Dates: start: 20140502
  36. SIMVASTATIN. [Concomitant]
     Active Substance: SIMVASTATIN
     Indication: PRODUCT USED FOR UNKNOWN INDICATION
     Dosage: DAILY DOSE: 10 MG MILLIGRAM(S) EVERY DAY
     Route: 048
     Dates: start: 20140201
  37. PIPAMPERON [Interacting]
     Active Substance: PIPAMPERONE HYDROCHLORIDE
     Dosage: 60 MG, UNK
     Route: 048
     Dates: start: 20140515, end: 20140524
  38. DIAZEPAM. [Interacting]
     Active Substance: DIAZEPAM
     Indication: RESTLESSNESS
     Dosage: 10 MG, UNK
     Route: 048
     Dates: start: 20140526, end: 20140528
  39. ABILIFY [Interacting]
     Active Substance: ARIPIPRAZOLE
     Indication: PRODUCT USED FOR UNKNOWN INDICATION
     Dosage: 2.5 MG, UNK
     Route: 048
     Dates: start: 20140508, end: 20140514

REACTIONS (14)
  - Loss of consciousness [Recovered/Resolved]
  - Pancytopenia [Recovered/Resolved]
  - Facial nerve disorder [Unknown]
  - Prescribed underdose [Unknown]
  - Dysarthria [Unknown]
  - Syncope [Recovered/Resolved]
  - Restlessness [Unknown]
  - Myoclonus [Unknown]
  - Left ventricular hypertrophy [Unknown]
  - Hypokalaemia [Unknown]
  - Fall [Unknown]
  - Diarrhoea [Unknown]
  - Drug interaction [Unknown]
  - Rash [Unknown]

NARRATIVE: CASE EVENT DATE: 20140519
